FAERS Safety Report 20144972 (Version 1)
Quarter: 2021Q4

REPORT INFORMATION
  Report Type: Spontaneous
  Country: JP (occurrence: None)
  Receive Date: 20211203
  Receipt Date: 20211203
  Transmission Date: 20220303
  Serious: Yes (Other)
  Sender: FDA-Public Use
  Company Number: 2021A848166

PATIENT
  Age: 61 Year
  Sex: Male

DRUGS (3)
  1. IMFINZI [Suspect]
     Active Substance: DURVALUMAB
     Indication: Small cell lung cancer
     Dosage: DOSE UNKNOWN, EVERY THREE WEEKS
     Route: 041
     Dates: start: 20210526, end: 20211022
  2. CARBOPLATIN [Suspect]
     Active Substance: CARBOPLATIN
     Indication: Small cell lung cancer
     Dosage: DOSE UNKNOWN, EVERY THREE WEEKS
     Route: 065
     Dates: start: 20210526, end: 20211022
  3. ETOPOSIDE [Suspect]
     Active Substance: ETOPOSIDE
     Indication: Small cell lung cancer
     Dosage: DOSE UNKNOWN, ON THE FIRST, SECOND, AND THIRD DAYS OF EACH COURSE
     Route: 065
     Dates: start: 20210526, end: 20211024

REACTIONS (1)
  - Febrile neutropenia [Unknown]

NARRATIVE: CASE EVENT DATE: 20210101
